FAERS Safety Report 20568616 (Version 2)
Quarter: 2022Q2

REPORT INFORMATION
  Report Type: Spontaneous
  Country: US (occurrence: US)
  Receive Date: 20220308
  Receipt Date: 20220415
  Transmission Date: 20220721
  Serious: Yes (Hospitalization, Other)
  Sender: FDA-Public Use
  Company Number: US-BAUSCH-BL-2022-005674

PATIENT
  Age: 73 Year
  Sex: Female
  Weight: 51.2 kg

DRUGS (21)
  1. FLUOROURACIL [Suspect]
     Active Substance: FLUOROURACIL
     Indication: Anal squamous cell carcinoma
     Route: 065
     Dates: start: 202108, end: 20211119
  2. FLUOROURACIL [Suspect]
     Active Substance: FLUOROURACIL
     Indication: Rectal cancer
  3. MITOMYCIN C [Suspect]
     Active Substance: MITOMYCIN
     Indication: Rectal cancer
     Route: 065
     Dates: start: 2021, end: 20211119
  4. MITOMYCIN C [Suspect]
     Active Substance: MITOMYCIN
     Indication: Anal squamous cell carcinoma
  5. INFLUENZA VIRUS VACCINE [Concomitant]
     Active Substance: INFLUENZA VIRUS VACCINE
     Indication: Product used for unknown indication
     Dates: start: 20201021, end: 20201021
  6. INFLUENZA VIRUS VACCINE [Concomitant]
     Active Substance: INFLUENZA VIRUS VACCINE
     Route: 065
     Dates: start: 20211015, end: 20211015
  7. SARS-COV-2 [Concomitant]
     Active Substance: SARS-COV-2
     Indication: Product used for unknown indication
     Dates: start: 20210220, end: 20210220
  8. SARS-COV-2 [Concomitant]
     Active Substance: SARS-COV-2
     Dates: start: 20210303, end: 20210303
  9. FIRDAPSE [Concomitant]
     Active Substance: AMIFAMPRIDINE PHOSPHATE
     Indication: Myasthenic syndrome
     Route: 048
     Dates: start: 20190305, end: 2019
  10. FIRDAPSE [Concomitant]
     Active Substance: AMIFAMPRIDINE PHOSPHATE
     Route: 048
     Dates: start: 2019, end: 201907
  11. FIRDAPSE [Concomitant]
     Active Substance: AMIFAMPRIDINE PHOSPHATE
     Route: 048
     Dates: start: 201907
  12. FIRDAPSE [Concomitant]
     Active Substance: AMIFAMPRIDINE PHOSPHATE
     Route: 048
     Dates: start: 201907
  13. FIRDAPSE [Concomitant]
     Active Substance: AMIFAMPRIDINE PHOSPHATE
     Route: 048
  14. LEVOTHYROXINE [Concomitant]
     Active Substance: LEVOTHYROXINE
     Indication: Product used for unknown indication
  15. PREDNISONE [Concomitant]
     Active Substance: PREDNISONE
     Indication: Product used for unknown indication
  16. BIOTIN [Concomitant]
     Active Substance: BIOTIN
     Indication: Product used for unknown indication
  17. VITAMIN B12 [Concomitant]
     Active Substance: CYANOCOBALAMIN
     Indication: Product used for unknown indication
  18. VITAMIN D3 [Concomitant]
     Active Substance: CHOLECALCIFEROL
     Indication: Product used for unknown indication
  19. XANAX [Concomitant]
     Active Substance: ALPRAZOLAM
     Indication: Product used for unknown indication
  20. BUPROPION [Concomitant]
     Active Substance: BUPROPION
     Indication: Product used for unknown indication
  21. CALCIUM [Concomitant]
     Active Substance: CALCIUM
     Indication: Product used for unknown indication

REACTIONS (31)
  - Dehydration [Recovered/Resolved]
  - Orthostatic hypotension [Not Recovered/Not Resolved]
  - Vomiting [Unknown]
  - Neutropenia [Unknown]
  - Pancytopenia [Unknown]
  - Hypothyroidism [Unknown]
  - Renal cell carcinoma [Unknown]
  - Intestinal obstruction [Unknown]
  - Nausea [Unknown]
  - Diarrhoea [Not Recovered/Not Resolved]
  - Malnutrition [Unknown]
  - Sterile pyuria [Unknown]
  - Malaise [Unknown]
  - Pleural effusion [Unknown]
  - Anaemia [Unknown]
  - Increased tendency to bruise [Unknown]
  - Ecchymosis [Unknown]
  - Asthenia [Unknown]
  - Rectal cancer [Unknown]
  - Urine leukocyte esterase positive [Unknown]
  - Thrombocytopenia [Unknown]
  - Lethargy [Unknown]
  - Gait disturbance [Unknown]
  - Hypophagia [Unknown]
  - Upper-airway cough syndrome [Unknown]
  - Dizziness [Unknown]
  - Cough [Unknown]
  - Sinus congestion [Unknown]
  - Speech disorder [Not Recovered/Not Resolved]
  - Weight decreased [Unknown]
  - Nasopharyngitis [Unknown]

NARRATIVE: CASE EVENT DATE: 20210101
